FAERS Safety Report 6001104-2 (Version None)
Quarter: 2008Q4

REPORT INFORMATION
  Report Type: 
  Country: None (occurrence: None)
  Receive Date: 20081215
  Receipt Date: 20071109
  Transmission Date: 20090506
  Serious: No
  Sender: FDA-Public Use
  Company Number: US-AMGEN-KDL249280

PATIENT
  Sex: Female
  Weight: 56.3 kg

DRUGS (3)
  1. ENBREL [Suspect]
     Indication: PSORIASIS
     Route: 058
     Dates: start: 20070517
  2. LOPRESSOR [Concomitant]
  3. NIFEDIPINE [Concomitant]
     Dates: start: 20070522

REACTIONS (1)
  - HEADACHE [None]
